FAERS Safety Report 9356047 (Version 1)
Quarter: 2013Q2

REPORT INFORMATION
  Report Type: Report from Study
  Country: US (occurrence: US)
  Receive Date: 20130619
  Receipt Date: 20130619
  Transmission Date: 20140414
  Serious: Yes (Hospitalization)
  Sender: FDA-Public Use
  Company Number: US-ABBOTT-13P-163-1103620-00

PATIENT
  Age: 63 Year
  Sex: Female

DRUGS (19)
  1. HUMIRA [Suspect]
     Indication: RHEUMATOID ARTHRITIS
     Dates: start: 201301, end: 201303
  2. CYMBALTA [Concomitant]
     Indication: PAIN
  3. HCTZ [Concomitant]
     Indication: FLUID RETENTION
  4. NEXIUM [Concomitant]
     Indication: GASTROOESOPHAGEAL REFLUX DISEASE
  5. PREDNISONE [Concomitant]
     Indication: RHEUMATOID ARTHRITIS
  6. SOMA [Concomitant]
     Indication: HYPOTONIA
  7. PLAQUENIL [Concomitant]
     Indication: RHEUMATOID ARTHRITIS
  8. WARFARIN [Concomitant]
     Indication: PRODUCT USED FOR UNKNOWN INDICATION
  9. ADCIRCA [Concomitant]
     Indication: PULMONARY ARTERIAL HYPERTENSION
  10. TRACLEER [Concomitant]
     Indication: PULMONARY ARTERIAL HYPERTENSION
  11. TRACLEER [Concomitant]
     Indication: CONSTIPATION PROPHYLAXIS
  12. GABAPENTIN [Concomitant]
     Indication: RESTLESS LEGS SYNDROME
  13. GABAPENTIN [Concomitant]
     Indication: NEURALGIA
  14. CALCIUM [Concomitant]
     Indication: PRODUCT USED FOR UNKNOWN INDICATION
  15. CALCIUM [Concomitant]
     Indication: NEURALGIA
  16. LIPITOR [Concomitant]
     Indication: BLOOD CHOLESTEROL
  17. LIPITOR [Concomitant]
     Indication: NEURALGIA
  18. XANAX [Concomitant]
     Indication: ANXIETY
  19. XANAX [Concomitant]
     Indication: NEURALGIA

REACTIONS (5)
  - Pyrexia [Recovering/Resolving]
  - Pneumonia [Not Recovered/Not Resolved]
  - Hepatitis B [Not Recovered/Not Resolved]
  - Hypotension [Not Recovered/Not Resolved]
  - Asthenia [Not Recovered/Not Resolved]
